FAERS Safety Report 6591010-7 (Version None)
Quarter: 2010Q1

REPORT INFORMATION
  Report Type: 
  Country: None (occurrence: None)
  Receive Date: 20100219
  Receipt Date: 20100205
  Transmission Date: 20100710
  Serious: Yes (Hospitalization)
  Sender: FDA-Public Use
  Company Number: US-CELGENEUS-163-21880-09090176

PATIENT
  Sex: Male

DRUGS (2)
  1. REVLIMID [Suspect]
     Indication: MULTIPLE MYELOMA
     Route: 048
     Dates: start: 20090810, end: 20090801
  2. REVLIMID [Suspect]
     Route: 048
     Dates: start: 20090901

REACTIONS (3)
  - STOMATITIS [None]
  - URINARY TRACT INFECTION ENTEROCOCCAL [None]
  - WHITE BLOOD CELL COUNT DECREASED [None]
